FAERS Safety Report 4729974-6 (Version None)
Quarter: 2005Q3

REPORT INFORMATION
  Report Type: 
  Country: None (occurrence: None)
  Receive Date: 20050729
  Receipt Date: 20050729
  Transmission Date: 20060218
  Serious: No
  Sender: FDA-Public Use
  Company Number: None

PATIENT
  Sex: Female

DRUGS (1)
  1. SOLU-MEDROL [Suspect]
     Indication: OPTIC NEURITIS
     Dosage: QD X 5 DAYS
     Dates: start: 20050426, end: 20050430

REACTIONS (3)
  - INFUSION SITE PAIN [None]
  - INFUSION SITE PRURITUS [None]
  - SKIN HYPERPIGMENTATION [None]
